FAERS Safety Report 25380673 (Version 1)
Quarter: 2025Q2

REPORT INFORMATION
  Report Type: Spontaneous
  Country: US (occurrence: None)
  Receive Date: 20250530
  Receipt Date: 20250530
  Transmission Date: 20250717
  Serious: No
  Sender: FDA-CTU
  Company Number: None

PATIENT
  Age: 47 Year
  Sex: Male

DRUGS (2)
  1. LEXAPRO [Suspect]
     Active Substance: ESCITALOPRAM OXALATE
  2. LEXAPRO [Concomitant]
     Active Substance: ESCITALOPRAM OXALATE

REACTIONS (8)
  - Drug withdrawal syndrome [None]
  - Tinnitus [None]
  - Photophobia [None]
  - Hyperacusis [None]
  - Brain fog [None]
  - Gastrointestinal disorder [None]
  - Colitis [None]
  - Insomnia [None]

NARRATIVE: CASE EVENT DATE: 20240207
